FAERS Safety Report 8559196-2 (Version None)
Quarter: 2012Q3

REPORT INFORMATION
  Report Type: 
  Country: None (occurrence: None)
  Receive Date: 20120720
  Receipt Date: 20120709
  Transmission Date: 20120928
  Serious: Yes (Other)
  Sender: FDA-Public Use
  Company Number: 2012SA049350

PATIENT
  Sex: Female

DRUGS (1)
  1. ICY HOT NO MESS / UNKNOWN / UNKNOWN [Suspect]

REACTIONS (3)
  - APPLICATION SITE VESICLES [None]
  - APPLICATION SITE BURN [None]
  - CHEMICAL INJURY [None]
